FAERS Safety Report 5683948-X (Version None)
Quarter: 2008Q1

REPORT INFORMATION
  Report Type: 
  Country: None (occurrence: None)
  Receive Date: 20080328
  Receipt Date: 20080320
  Transmission Date: 20080703
  Serious: Yes (Hospitalization, Other)
  Sender: FDA-Public Use
  Company Number: US-JNJFOC-20080206096

PATIENT
  Age: 15 Year
  Sex: Male

DRUGS (2)
  1. REMICADE [Suspect]
     Indication: CROHN'S DISEASE
     Route: 042
  2. HEPARIN [Concomitant]
     Indication: DEEP VEIN THROMBOSIS
     Route: 042

REACTIONS (2)
  - CONVULSION [None]
  - ENCEPHALOPATHY [None]
